FAERS Safety Report 15945821 (Version 1)
Quarter: 2019Q1

REPORT INFORMATION
  Report Type: Spontaneous
  Country: US (occurrence: US)
  Receive Date: 20190211
  Receipt Date: 20190211
  Transmission Date: 20190417
  Serious: No
  Sender: FDA-Public Use
  Company Number: US-APOTEX-2018AP025101

PATIENT

DRUGS (1)
  1. ROSUVASTATIN CALCIUM. [Suspect]
     Active Substance: ROSUVASTATIN CALCIUM
     Indication: PRODUCT USED FOR UNKNOWN INDICATION
     Route: 065

REACTIONS (4)
  - Diarrhoea [Recovered/Resolved]
  - Product substitution issue [Unknown]
  - Vomiting [Recovered/Resolved]
  - Malaise [Recovered/Resolved]
